FAERS Safety Report 21271640 (Version 1)
Quarter: 2022Q3

REPORT INFORMATION
  Report Type: Spontaneous
  Country: ES (occurrence: ES)
  Receive Date: 20220830
  Receipt Date: 20220830
  Transmission Date: 20221026
  Serious: Yes (Life-Threatening, Other)
  Sender: FDA-Public Use
  Company Number: ES-PFIZER INC-202201017065

PATIENT
  Age: 62 Year
  Sex: Female

DRUGS (2)
  1. BORTEZOMIB [Suspect]
     Active Substance: BORTEZOMIB
     Indication: Plasma cell myeloma
     Dosage: UNK, CYCLIC (2 CYCLES)
     Route: 042
  2. DEXAMETHASONE [Suspect]
     Active Substance: DEXAMETHASONE
     Indication: Plasma cell myeloma
     Dosage: UNK, CYCLIC (2 CYCLES)
     Route: 065

REACTIONS (1)
  - Posterior reversible encephalopathy syndrome [Unknown]
